FAERS Safety Report 8283938-7 (Version None)
Quarter: 2012Q2

REPORT INFORMATION
  Report Type: 
  Country: None (occurrence: None)
  Receive Date: 20120413
  Receipt Date: 20110929
  Transmission Date: 20120825
  Serious: No
  Sender: FDA-Public Use
  Company Number: US-ASTRAZENECA-2011SE31917

PATIENT
  Age: 53 Year
  Sex: Female

DRUGS (8)
  1. FLEXERIL [Concomitant]
  2. SPIRIVA [Concomitant]
  3. ALBUTEROL [Concomitant]
  4. ABILIFY [Concomitant]
  5. PRILOSEC [Suspect]
     Route: 048
  6. EFFEXOR XR [Concomitant]
  7. NEXIUM [Suspect]
     Route: 048
  8. VICODIN [Concomitant]

REACTIONS (5)
  - FUNGAL INFECTION [None]
  - DYSPHONIA [None]
  - DYSPHAGIA [None]
  - GASTROOESOPHAGEAL REFLUX DISEASE [None]
  - DRUG DOSE OMISSION [None]
